FAERS Safety Report 5358274-9 (Version None)
Quarter: 2007Q2

REPORT INFORMATION
  Report Type: 
  Country: None (occurrence: None)
  Receive Date: 20070530
  Receipt Date: 20061027
  Transmission Date: 20071010
  Serious: Yes (Other)
  Sender: FDA-Public Use
  Company Number: US200603002219

PATIENT
  Age: 75 Year
  Sex: Female
  Weight: 91.6 kg

DRUGS (5)
  1. ZYPREXA [Suspect]
     Indication: DEPRESSION
     Dosage: 5 MG, ORAL
     Route: 048
     Dates: start: 20000601, end: 20020801
  2. METOPROLOL TARTRATE [Concomitant]
  3. ROSIGLITAZONE [Concomitant]
  4. ACTOS [Concomitant]
  5. INSULIN HUMAN (INSULIN HUMAN) [Concomitant]

REACTIONS (15)
  - BILIARY TRACT DISORDER [None]
  - BLOOD CHOLESTEROL INCREASED [None]
  - BLOOD TRIGLYCERIDES INCREASED [None]
  - CEREBROVASCULAR DISORDER [None]
  - DIABETES MELLITUS [None]
  - DIABETIC KETOACIDOSIS [None]
  - GLYCOSURIA [None]
  - HYPERGLYCAEMIA [None]
  - HYPERGLYCAEMIC HYPEROSMOLAR NONKETOTIC SYNDROME [None]
  - HYPERTENSION [None]
  - MYOCARDIAL ISCHAEMIA [None]
  - PANCREATITIS [None]
  - POLYDIPSIA [None]
  - POLYURIA [None]
  - VISION BLURRED [None]
